FAERS Safety Report 8924366 (Version 1)
Quarter: 2012Q4

REPORT INFORMATION
  Report Type: 
  Country: JO (occurrence: JO)
  Receive Date: 20121126
  Receipt Date: 20121126
  Transmission Date: 20130627
  Serious: Yes (Death)
  Sender: FDA-Public Use
  Company Number: JO-GLAXOSMITHKLINE-B0847417A

PATIENT
  Age: 65 Year
  Sex: Female

DRUGS (1)
  1. TYKERB [Suspect]
     Indication: BREAST CANCER
     Dosage: 1250MG Per day
     Route: 065

REACTIONS (2)
  - Respiratory arrest [Fatal]
  - Lung cancer metastatic [Unknown]
